FAERS Safety Report 13328729 (Version 1)
Quarter: 2017Q1

REPORT INFORMATION
  Report Type: Spontaneous
  Country: US (occurrence: US)
  Receive Date: 20170311
  Receipt Date: 20170311
  Transmission Date: 20170428
  Serious: No
  Sender: FDA-Public Use
  Company Number: None

PATIENT
  Age: 51 Year
  Sex: Female
  Weight: 81 kg

DRUGS (6)
  1. SOOLANTRA [Suspect]
     Active Substance: IVERMECTIN
     Indication: ROSACEA
     Dosage: QUANTITY:1 PEA SIZED DROP;?
     Route: 061
     Dates: start: 20170303, end: 20170310
  2. ATENOLOL. [Concomitant]
     Active Substance: ATENOLOL
  3. CYCLAFEM [Concomitant]
  4. MULTIVITAMIN [Concomitant]
     Active Substance: VITAMINS
  5. GOLDENMILK TUMERIC [Concomitant]
  6. ORACEA [Concomitant]
     Active Substance: DOXYCYCLINE

REACTIONS (5)
  - Erythema [None]
  - Application site pain [None]
  - Skin disorder [None]
  - Application site pruritus [None]
  - Skin discolouration [None]

NARRATIVE: CASE EVENT DATE: 20170305
